FAERS Safety Report 13814040 (Version 1)
Quarter: 2017Q3

REPORT INFORMATION
  Report Type: Spontaneous
  Country: GB (occurrence: GB)
  Receive Date: 20170731
  Receipt Date: 20170731
  Transmission Date: 20171127
  Serious: Yes (Life-Threatening)
  Sender: FDA-Public Use
  Company Number: GB-ACCORD-056349

PATIENT
  Age: 50 Year
  Sex: Female
  Weight: 81 kg

DRUGS (17)
  1. PANTOPRAZOLE [Concomitant]
     Active Substance: PANTOPRAZOLE
  2. APREPITANT. [Concomitant]
     Active Substance: APREPITANT
  3. FLUOROURACIL. [Concomitant]
     Active Substance: FLUOROURACIL
     Indication: CHEMOTHERAPY
  4. IRINOTECAN [Concomitant]
     Active Substance: IRINOTECAN
     Indication: CHEMOTHERAPY
  5. LOSARTAN. [Concomitant]
     Active Substance: LOSARTAN
  6. ONDANSETRON [Concomitant]
     Active Substance: ONDANSETRON
  7. AMITRIPTYLINE [Concomitant]
     Active Substance: AMITRIPTYLINE
  8. CYCLIZINE [Concomitant]
     Active Substance: CYCLIZINE
  9. DEXAMETHASONE. [Concomitant]
     Active Substance: DEXAMETHASONE
  10. HALOPERIDOL. [Concomitant]
     Active Substance: HALOPERIDOL
  11. ZARZIO [Concomitant]
     Active Substance: FILGRASTIM
  12. FOLINIC ACID [Concomitant]
     Active Substance: LEUCOVORIN
  13. LERCANIDIPINE [Concomitant]
     Active Substance: LERCANIDIPINE
  14. OXALIPLATIN. [Suspect]
     Active Substance: OXALIPLATIN
     Indication: CHEMOTHERAPY
     Route: 042
     Dates: start: 20170626, end: 20170626
  15. ATROPINE. [Concomitant]
     Active Substance: ATROPINE
  16. CREON [Concomitant]
     Active Substance: PANCRELIPASE AMYLASE\PANCRELIPASE LIPASE\PANCRELIPASE PROTEASE
  17. DOMPERIDONE [Concomitant]
     Active Substance: DOMPERIDONE

REACTIONS (9)
  - Dyspnoea [Recovered/Resolved]
  - Vision blurred [Recovered/Resolved]
  - Malaise [Recovered/Resolved]
  - Muscle twitching [Recovered/Resolved]
  - Dysphonia [Recovered/Resolved]
  - Paraesthesia [Recovered/Resolved]
  - Bronchospasm [Recovered/Resolved]
  - Swollen tongue [Recovered/Resolved]
  - Limb discomfort [Recovered/Resolved]

NARRATIVE: CASE EVENT DATE: 20170626
